FAERS Safety Report 8059584-7 (Version None)
Quarter: 2012Q1

REPORT INFORMATION
  Report Type: 
  Country: None (occurrence: None)
  Receive Date: 20120113
  Receipt Date: 20120103
  Transmission Date: 20120608
  Serious: Yes (Life-Threatening)
  Sender: FDA-Public Use
  Company Number: 1000026898

PATIENT
  Age: 25 Year
  Sex: Female

DRUGS (9)
  1. OXAZEPAM [Suspect]
     Dosage: 200 MG (200 MG, 1 IN 1 D), ORAL; (1 GM, ONCE), ORAL
     Route: 048
     Dates: start: 20111012, end: 20111012
  2. OXAZEPAM [Suspect]
     Dosage: 200 MG (200 MG, 1 IN 1 D), ORAL; (1 GM, ONCE), ORAL
     Route: 048
     Dates: start: 20111012, end: 20111012
  3. ESCITALOPRAM [Suspect]
     Dosage: 10 MG (10 MG, 1 IN 1 D), ORAL; (140 MG, ONCE), ORAL
     Route: 048
     Dates: start: 20111012, end: 20111012
  4. PRAZEPAM [Concomitant]
  5. PROPRANOLOL [Suspect]
     Dosage: 20 MG (20 MG, 1 IN 1 D), ORAL; (2 GM, ONCE), ORAL
     Route: 048
     Dates: start: 20111012, end: 20111012
  6. HAVLANE (LOPRAZOLAM MESILATE) [Concomitant]
  7. XANAX [Suspect]
     Dosage: (7.5 MG, ONCE), ORAL
     Route: 048
     Dates: start: 20111012, end: 20111012
  8. TOPIRAMATE [Concomitant]
  9. ATARAX [Concomitant]

REACTIONS (6)
  - CIRCULATORY COLLAPSE [None]
  - ATRIOVENTRICULAR BLOCK [None]
  - TOXICITY TO VARIOUS AGENTS [None]
  - COMA [None]
  - OXYGEN SATURATION DECREASED [None]
  - HEART RATE DECREASED [None]
